FAERS Safety Report 4961213-3 (Version None)
Quarter: 2006Q1

REPORT INFORMATION
  Report Type: 
  Country: None (occurrence: None)
  Receive Date: 20060201
  Receipt Date: 20051024
  Transmission Date: 20060701
  Serious: No
  Sender: FDA-Public Use
  Company Number: 2005PV003686

PATIENT
  Age: 62 Year
  Sex: Female
  Weight: 131.5431 kg

DRUGS (4)
  1. BYETTA [Suspect]
     Indication: DIABETES MELLITUS NON-INSULIN-DEPENDENT
     Dosage: 5 MCG;BID;SC
     Route: 058
     Dates: start: 20051014
  2. AVANDIA [Concomitant]
  3. GLUCOTROL XL [Concomitant]
  4. COLCHICINE [Concomitant]

REACTIONS (6)
  - ANOREXIA [None]
  - DIARRHOEA [None]
  - HEART RATE INCREASED [None]
  - NAUSEA [None]
  - RETCHING [None]
  - WEIGHT DECREASED [None]
